FAERS Safety Report 11612204 (Version 1)
Quarter: 2015Q4

REPORT INFORMATION
  Report Type: Spontaneous
  Country: US (occurrence: US)
  Receive Date: 20151008
  Receipt Date: 20151008
  Transmission Date: 20160304
  Serious: Yes (Other)
  Sender: FDA-Public Use
  Company Number: US-GLAXOSMITHKLINE-US2015GSK143025

PATIENT
  Sex: Female

DRUGS (1)
  1. COREG [Suspect]
     Active Substance: CARVEDILOL
     Indication: PRODUCT USED FOR UNKNOWN INDICATION
     Dosage: 18.5 MG, BID

REACTIONS (2)
  - Swelling [Recovering/Resolving]
  - Cardiac failure congestive [Recovering/Resolving]
